FAERS Safety Report 15596327 (Version 4)
Quarter: 2019Q2

REPORT INFORMATION
  Report Type: Spontaneous
  Country: JP (occurrence: JP)
  Receive Date: 20181107
  Receipt Date: 20190516
  Transmission Date: 20190711
  Serious: Yes (Life-Threatening, Hospitalization, Other)
  Sender: FDA-Public Use
  Company Number: PHJP2018JP018844

PATIENT
  Age: 31 Year
  Sex: Male
  Weight: 70.7 kg

DRUGS (7)
  1. NEORAL [Concomitant]
     Active Substance: CYCLOSPORINE
     Indication: DRUG REACTION WITH EOSINOPHILIA AND SYSTEMIC SYMPTOMS
     Dosage: 150 MG, QD
     Route: 048
     Dates: start: 20180412
  2. OLANZAPINE. [Concomitant]
     Active Substance: OLANZAPINE
     Indication: PRODUCT USED FOR UNKNOWN INDICATION
     Dosage: 12.5 MG, UNK
     Route: 065
  3. RISPERDAL [Suspect]
     Active Substance: RISPERIDONE
     Indication: BIPOLAR DISORDER
     Dosage: UNK
     Route: 048
     Dates: end: 20180324
  4. LEVOTOMIN [Suspect]
     Active Substance: LEVOMEPROMAZINE
     Indication: BIPOLAR DISORDER
     Dosage: UNK
     Route: 048
     Dates: end: 20180324
  5. TEGRETOL [Suspect]
     Active Substance: CARBAMAZEPINE
     Indication: BIPOLAR DISORDER
     Dosage: 200 MG, QD
     Route: 048
     Dates: start: 20180220, end: 20180324
  6. BELSOMRA [Suspect]
     Active Substance: SUVOREXANT
     Indication: BIPOLAR DISORDER
     Dosage: UNK
     Route: 048
     Dates: end: 20180324
  7. AKINETON [Suspect]
     Active Substance: BIPERIDEN HYDROCHLORIDE
     Indication: BIPOLAR DISORDER
     Dosage: UNK
     Route: 048
     Dates: end: 20180329

REACTIONS (13)
  - Rash [Recovering/Resolving]
  - Hepatic function abnormal [Unknown]
  - Lymphadenopathy [Unknown]
  - Papule [Unknown]
  - Shock [Unknown]
  - Pyrexia [Recovering/Resolving]
  - Purpura [Unknown]
  - Type 1 diabetes mellitus [Not Recovered/Not Resolved]
  - Drug reaction with eosinophilia and systemic symptoms [Not Recovered/Not Resolved]
  - Cytomegalovirus infection [Unknown]
  - Human herpesvirus 6 infection [Unknown]
  - Neuroleptic malignant syndrome [Recovering/Resolving]
  - General physical condition decreased [Unknown]

NARRATIVE: CASE EVENT DATE: 20180324
